FAERS Safety Report 4363735-5 (Version None)
Quarter: 2004Q2

REPORT INFORMATION
  Report Type: 
  Country: None (occurrence: None)
  Receive Date: 20040521
  Receipt Date: 20040521
  Transmission Date: 20050107
  Serious: Yes (Death)
  Sender: FDA-Public Use
  Company Number: None

PATIENT
  Age: 60 Year
  Sex: Male
  Weight: 78 kg

DRUGS (1)
  1. PROCRIT 40, 000 UNITS/ML ORTHO BIOTECH [Suspect]
     Indication: PANCYTOPENIA
     Dosage: 40, 000 WEEKLY UNITS SQ
     Route: 058
     Dates: start: 20040123, end: 20040126

REACTIONS (8)
  - CARDIOMEGALY [None]
  - CEREBELLAR ARTERY THROMBOSIS [None]
  - HEPATIC CONGESTION [None]
  - PERIPHERAL COLDNESS [None]
  - PLEURAL EFFUSION [None]
  - PULMONARY OEDEMA [None]
  - RENAL TUBULAR NECROSIS [None]
  - RESPIRATORY ARREST [None]
